FAERS Safety Report 14532179 (Version 3)
Quarter: 2018Q2

REPORT INFORMATION
  Report Type: Report from Study
  Country: US (occurrence: US)
  Receive Date: 20180214
  Receipt Date: 20180504
  Transmission Date: 20180711
  Serious: Yes (Hospitalization)
  Sender: FDA-Public Use
  Company Number: US-ACTELION-A-NJ2018-167573

PATIENT
  Age: 64 Year
  Sex: Female

DRUGS (26)
  1. OPSUMIT [Suspect]
     Active Substance: MACITENTAN
     Indication: PULMONARY ARTERIAL HYPERTENSION
     Dosage: 10 MG, QD
     Route: 048
     Dates: start: 20140311
  2. MUCINEX DM [Concomitant]
     Active Substance: DEXTROMETHORPHAN HYDROBROMIDE\GUAIFENESIN
  3. IPRATROPIUM [Concomitant]
     Active Substance: IPRATROPIUM
  4. AMIODARONE [Concomitant]
     Active Substance: AMIODARONE
  5. ALLOPURINOL. [Concomitant]
     Active Substance: ALLOPURINOL
  6. SODIUM BICARBONATE. [Concomitant]
     Active Substance: SODIUM BICARBONATE
  7. METOPROLOL. [Concomitant]
     Active Substance: METOPROLOL
  8. WARFARIN [Concomitant]
     Active Substance: WARFARIN
  9. MIRTAZAPIN [Concomitant]
     Active Substance: MIRTAZAPINE
  10. AMLODIPINE [Concomitant]
     Active Substance: AMLODIPINE BESYLATE
  11. DICYCLOMINE [Concomitant]
     Active Substance: DICYCLOMINE HYDROCHLORIDE
  12. HYDROQUINONE. [Concomitant]
     Active Substance: HYDROQUINONE
  13. OMEPRAZOLE. [Concomitant]
     Active Substance: OMEPRAZOLE
  14. LOSARTAN POTASSIUM. [Concomitant]
     Active Substance: LOSARTAN POTASSIUM
  15. FUROSEMIDE. [Concomitant]
     Active Substance: FUROSEMIDE
  16. FAMOTIDINE. [Concomitant]
     Active Substance: FAMOTIDINE
  17. NIFEDIPINE. [Concomitant]
     Active Substance: NIFEDIPINE
  18. NOVASOURCE 2.0 [Concomitant]
  19. OSELTAMIVIR [Concomitant]
     Active Substance: OSELTAMIVIR
  20. METHYLPRED [Concomitant]
     Active Substance: METHYLPREDNISOLONE
  21. DILTIAZEM. [Concomitant]
     Active Substance: DILTIAZEM
  22. KETOCONAZOLE. [Concomitant]
     Active Substance: KETOCONAZOLE
  23. METOLAZONE. [Concomitant]
     Active Substance: METOLAZONE
  24. TORSEMIDE. [Concomitant]
     Active Substance: TORSEMIDE
  25. SEVELAMER [Concomitant]
     Active Substance: SEVELAMER
  26. KCL [Concomitant]
     Active Substance: POTASSIUM CHLORIDE

REACTIONS (6)
  - Dyspnoea [Recovered/Resolved]
  - Influenza [Recovered/Resolved]
  - Asthenia [Unknown]
  - Pneumonia [Recovered/Resolved]
  - Peripheral swelling [Recovered/Resolved]
  - Drug dose omission [Recovered/Resolved]

NARRATIVE: CASE EVENT DATE: 20171220
